FAERS Safety Report 9085148 (Version 1)
Quarter: 2013Q1

REPORT INFORMATION
  Report Type: Report from Study
  Country: US (occurrence: US)
  Receive Date: 20130130
  Receipt Date: 20130130
  Transmission Date: 20140127
  Serious: No
  Sender: FDA-Public Use
  Company Number: US-ABBOTT-12P-163-0988232-00

PATIENT
  Sex: Female
  Weight: 123.49 kg

DRUGS (16)
  1. HUMIRA [Suspect]
     Indication: RHEUMATOID ARTHRITIS
     Route: 058
     Dates: start: 20120404, end: 20120613
  2. METHOTREXATE [Concomitant]
     Indication: RHEUMATOID ARTHRITIS
     Route: 048
  3. METHOTREXATE [Concomitant]
     Indication: SYSTEMIC LUPUS ERYTHEMATOSUS
  4. ORENCIA [Concomitant]
     Indication: RHEUMATOID ARTHRITIS
     Route: 042
  5. ORENCIA [Concomitant]
     Indication: SYSTEMIC LUPUS ERYTHEMATOSUS
  6. PLAQUENIL [Concomitant]
     Indication: RHEUMATOID ARTHRITIS
  7. PLAQUENIL [Concomitant]
     Indication: SYSTEMIC LUPUS ERYTHEMATOSUS
  8. FOLIC ACID [Concomitant]
     Indication: PRODUCT USED FOR UNKNOWN INDICATION
  9. BENTYL [Concomitant]
     Indication: DIARRHOEA
  10. AMBIEN [Concomitant]
     Indication: SLEEP DISORDER
     Dosage: AT BEDTIME
  11. LEVOXYL [Concomitant]
     Indication: HYPOTHYROIDISM
  12. OMEPRAZOLE [Concomitant]
     Indication: GASTROOESOPHAGEAL REFLUX DISEASE
  13. HYDROCODONE [Concomitant]
     Indication: PAIN
     Dosage: 7.5/325MG AS NEEDED AT NIGHT
  14. RELPAX [Concomitant]
     Indication: MIGRAINE
  15. PHENERGAN [Concomitant]
     Indication: NAUSEA
  16. LASIX [Concomitant]
     Indication: DIURETIC THERAPY

REACTIONS (5)
  - Fatigue [Recovered/Resolved]
  - Systemic lupus erythematosus [Recovered/Resolved]
  - Pain [Recovered/Resolved]
  - Vomiting [Recovered/Resolved]
  - Diarrhoea [Recovered/Resolved]
